FAERS Safety Report 20617954 (Version 1)
Quarter: 2022Q1

REPORT INFORMATION
  Report Type: Spontaneous
  Country: CN (occurrence: CN)
  Receive Date: 20220321
  Receipt Date: 20220321
  Transmission Date: 20220424
  Serious: Yes (Other)
  Sender: FDA-Public Use
  Company Number: CN-BAXTER-2022BAX006063

PATIENT
  Age: 67 Year
  Sex: Female
  Weight: 60 kg

DRUGS (13)
  1. CYCLOPHOSPHAMIDE [Suspect]
     Active Substance: CYCLOPHOSPHAMIDE
     Indication: Breast cancer female
     Dosage: FIRST CHEMOTHERAPY; CYCLOPHOSPHAMIDE FOR INJECTION (ENDOXAN CTX) + NS
     Route: 042
  2. CYCLOPHOSPHAMIDE [Suspect]
     Active Substance: CYCLOPHOSPHAMIDE
     Dosage: CYCLOPHOSPHAMIDE FOR INJECTION (ENDOXAN CTX) 850 MG + NS 45ML
     Route: 042
     Dates: start: 20220209, end: 20220209
  3. CYCLOPHOSPHAMIDE [Suspect]
     Active Substance: CYCLOPHOSPHAMIDE
     Dosage: DOSE REINTRODUCED FOR CYCLOPHOSPHAMIDE FOR INJECTION (ENDOXAN CTX) + NS
     Route: 042
  4. SODIUM CHLORIDE [Suspect]
     Active Substance: SODIUM CHLORIDE
     Indication: Medication dilution
     Dosage: FIRST CHEMOTHERAPY; CYCLOPHOSPHAMIDE FOR INJECTION (ENDOXAN CTX) + NS
     Route: 042
  5. SODIUM CHLORIDE [Suspect]
     Active Substance: SODIUM CHLORIDE
     Dosage: FIRST CHEMOTHERAPY; EPIRUBICIN HYDROCHLORIDE FOR INJECTION (PHARMORUBICIN) + NS
     Route: 041
  6. SODIUM CHLORIDE [Suspect]
     Active Substance: SODIUM CHLORIDE
     Dosage: SECOND CHEMOTHERAPY: CYCLOPHOSPHAMIDE FOR INJECTION (ENDOXAN CTX) 850 MG + NS 45ML
     Route: 042
     Dates: start: 20220209, end: 20220209
  7. SODIUM CHLORIDE [Suspect]
     Active Substance: SODIUM CHLORIDE
     Dosage: SECOND CHEMOTHERAPY; EPIRUBICIN HYDROCHLORIDE FOR INJECTION (PHARMORUBICIN) 128 MG + NS 100ML
     Route: 041
     Dates: start: 20220209, end: 20220209
  8. SODIUM CHLORIDE [Suspect]
     Active Substance: SODIUM CHLORIDE
     Dosage: DOSE REINTRODUCED FOR CYCLOPHOSPHAMIDE FOR INJECTION (ENDOXAN CTX) + NS
     Route: 042
  9. SODIUM CHLORIDE [Suspect]
     Active Substance: SODIUM CHLORIDE
     Dosage: DOSE REINTRODUCED FOR EPIRUBICIN HYDROCHLORIDE FOR INJECTION (PHARMORUBICIN) + NS
     Route: 041
  10. EPIRUBICIN [Suspect]
     Active Substance: EPIRUBICIN
     Indication: Breast cancer female
     Dosage: FIRST CHEMOTHERAPY; EPIRUBICIN HYDROCHLORIDE FOR INJECTION (PHARMORUBICIN) + NS
     Route: 041
  11. EPIRUBICIN [Suspect]
     Active Substance: EPIRUBICIN
     Dosage: 2ND CHEMOTHERAPY; EPIRUBICIN HYDROCHLORIDE FOR INJECTION (PHARMORUBICIN) 128 MG + NS 100ML
     Route: 041
     Dates: start: 20220209, end: 20220209
  12. EPIRUBICIN [Suspect]
     Active Substance: EPIRUBICIN
     Dosage: DOSE REINTRODUCED FOR EPIRUBICIN HYDROCHLORIDE FOR INJECTION (PHARMORUBICIN) + NS
     Route: 041
  13. Jinyouli Xinruibai [Concomitant]
     Indication: Product used for unknown indication
     Dosage: PEGYLATED RECOMBINANT HUMAN GRANULOCYTE STIMULATING FACTOR
     Route: 058
     Dates: start: 202202

REACTIONS (2)
  - White blood cell count decreased [Recovered/Resolved]
  - Agranulocytosis [Recovered/Resolved]

NARRATIVE: CASE EVENT DATE: 20220216
